FAERS Safety Report 19474894 (Version 1)
Quarter: 2021Q2

REPORT INFORMATION
  Report Type: Spontaneous
  Country: PL (occurrence: PL)
  Receive Date: 20210630
  Receipt Date: 20210630
  Transmission Date: 20210717
  Serious: Yes (Other)
  Sender: FDA-Public Use
  Company Number: PL-LUPIN PHARMACEUTICALS INC.-2021-10461

PATIENT
  Age: 5 Year
  Sex: Male

DRUGS (8)
  1. METHYLPREDNISOLONE. [Suspect]
     Active Substance: METHYLPREDNISOLONE
     Indication: PRIMARY IMMUNODEFICIENCY SYNDROME
     Dosage: 0.1 MILLIGRAM/KILOGRAM, TAPERED DOSES; MAINTENANCE TREATMENT
     Route: 065
  2. MYCOPHENOLATE MOFETIL. [Concomitant]
     Active Substance: MYCOPHENOLATE MOFETIL
     Indication: INTERSTITIAL LUNG DISEASE
  3. METHYLPREDNISOLONE. [Suspect]
     Active Substance: METHYLPREDNISOLONE
     Indication: INTERSTITIAL LUNG DISEASE
  4. PREDNISONE. [Suspect]
     Active Substance: PREDNISONE
     Indication: INTERSTITIAL LUNG DISEASE
  5. RAPAMYCIN [Concomitant]
     Active Substance: SIROLIMUS
     Indication: INTERSTITIAL LUNG DISEASE
  6. RAPAMYCIN [Concomitant]
     Active Substance: SIROLIMUS
     Indication: PRIMARY IMMUNODEFICIENCY SYNDROME
     Dosage: UNK, 1.6?1.4 MG/KG
     Route: 065
  7. MYCOPHENOLATE MOFETIL. [Concomitant]
     Active Substance: MYCOPHENOLATE MOFETIL
     Indication: PRIMARY IMMUNODEFICIENCY SYNDROME
     Dosage: 400 MILLIGRAM, QD
     Route: 065
  8. PREDNISONE. [Suspect]
     Active Substance: PREDNISONE
     Indication: PRIMARY IMMUNODEFICIENCY SYNDROME
     Dosage: 2 MILLIGRAM/KILOGRAM, INITIAL DOSE
     Route: 065

REACTIONS (2)
  - Thrombocytopenia [Unknown]
  - Steroid dependence [Unknown]
